FAERS Safety Report 9922779 (Version 1)
Quarter: 2014Q1

REPORT INFORMATION
  Report Type: Report from Study
  Country: US (occurrence: US)
  Receive Date: 20140225
  Receipt Date: 20140225
  Transmission Date: 20141002
  Serious: Yes (Hospitalization)
  Sender: FDA-Public Use
  Company Number: US-009507513-1402USA011618

PATIENT
  Age: 57 Year
  Sex: Female
  Weight: 64 kg

DRUGS (16)
  1. BOCEPREVIR [Suspect]
     Indication: CHRONIC HEPATITIS C
     Dosage: 2400 MG DAILY(FORMULATION REPORTED AS PILL)
     Route: 048
     Dates: start: 20120721
  2. RIBAVIRIN [Suspect]
     Indication: CHRONIC HEPATITIS C
     Dosage: 800 MG DAILY(FORMULATION REPORTED AS PILL)
     Route: 048
     Dates: start: 20120623
  3. RIBAVIRIN [Suspect]
     Dosage: 400 MG DAILY(FORMULATION REPORTED AS PILL)
     Route: 048
     Dates: start: 20120720
  4. PEGINTERFERON ALFA-2A [Suspect]
     Indication: CHRONIC HEPATITIS C
     Dosage: 180 MICROGRAM, QW(FORMULATION: LIQUID)
     Route: 058
     Dates: start: 20120623
  5. PEGINTERFERON ALFA-2A [Suspect]
     Dosage: 180 UNK, UNK
     Route: 058
     Dates: start: 20130623
  6. TOPAMAX [Concomitant]
     Dosage: UNK
  7. AMBIEN [Concomitant]
     Dosage: UNK
  8. ABILIFY [Concomitant]
     Dosage: UNK
  9. LEXAPRO [Concomitant]
     Dosage: UNK
  10. NEURONTIN [Concomitant]
     Dosage: UNK
  11. VISTARIL [Concomitant]
     Dosage: 150 MG, PRN
  12. LAMICTAL [Concomitant]
     Dosage: UNK
  13. ATIVAN [Concomitant]
     Dosage: 3 MG, PRN
  14. MOBIC [Concomitant]
     Dosage: UNK
  15. IMITREX (SUMATRIPTAN SUCCINATE) [Concomitant]
     Dosage: UNK
  16. RESTORIL (TEMAZEPAM) [Concomitant]
     Dosage: UNK

REACTIONS (1)
  - Anaemia [Recovered/Resolved]
